FAERS Safety Report 6043084-X (Version None)
Quarter: 2009Q1

REPORT INFORMATION
  Report Type: 
  Country: None (occurrence: None)
  Receive Date: 20090119
  Receipt Date: 20081230
  Transmission Date: 20090719
  Serious: Yes (Life-Threatening, Hospitalization)
  Sender: FDA-Public Use
  Company Number: PL-PFIZER INC-2007030688

PATIENT

DRUGS (4)
  1. SUNITINIB MALATE [Suspect]
  2. ZOLADEX [Suspect]
     Route: 058
     Dates: start: 20061220
  3. FOLIC ACID [Concomitant]
     Route: 048
     Dates: start: 20070220
  4. CORDAFEN [Concomitant]
     Route: 048
     Dates: start: 20061005

REACTIONS (1)
  - EMBOLISM [None]
